FAERS Safety Report 20665560 (Version 3)
Quarter: 2022Q3

REPORT INFORMATION
  Report Type: Report from Study
  Country: US (occurrence: US)
  Receive Date: 20220402
  Receipt Date: 20220723
  Transmission Date: 20221027
  Serious: Yes (Other)
  Sender: FDA-Public Use
  Company Number: NVSC2022US074378

PATIENT
  Sex: Female

DRUGS (1)
  1. ENTRESTO [Suspect]
     Active Substance: SACUBITRIL\VALSARTAN
     Indication: Product used for unknown indication
     Dosage: 49/51 MG, BID
     Route: 048
     Dates: start: 202107

REACTIONS (7)
  - Diabetes mellitus [Unknown]
  - Disorientation [Unknown]
  - Somnolence [Unknown]
  - Fluid retention [Unknown]
  - Dehydration [Unknown]
  - Joint swelling [Unknown]
  - Thirst [Unknown]
